FAERS Safety Report 14497072 (Version 5)
Quarter: 2018Q2

REPORT INFORMATION
  Report Type: Spontaneous
  Country: US (occurrence: US)
  Receive Date: 20180207
  Receipt Date: 20180521
  Transmission Date: 20180711
  Serious: No
  Sender: FDA-Public Use
  Company Number: US-PFIZER INC-2018052676

PATIENT
  Age: 43 Year
  Sex: Male
  Weight: 127 kg

DRUGS (12)
  1. CIPRO [Concomitant]
     Active Substance: CIPROFLOXACIN HYDROCHLORIDE
     Dosage: UNK
  2. HYDROCODONE/ ASAP [Concomitant]
     Dosage: UNK
  3. TRAMADOL. [Concomitant]
     Active Substance: TRAMADOL
     Dosage: UNK, AS NEEDED, (PRN)
  4. PLAVIX [Concomitant]
     Active Substance: CLOPIDOGREL BISULFATE
     Dosage: UNK
  5. PROTONIX [Concomitant]
     Active Substance: PANTOPRAZOLE SODIUM
     Indication: GASTROOESOPHAGEAL REFLUX DISEASE
     Dosage: 20 MG, UNK
     Dates: start: 20180115
  6. PYRIDIUM [Concomitant]
     Active Substance: PHENAZOPYRIDINE
     Dosage: UNK
  7. METOPROLOL. [Concomitant]
     Active Substance: METOPROLOL
     Dosage: UNK
  8. ASPIRIN. [Concomitant]
     Active Substance: ASPIRIN
     Dosage: UNK
  9. LISINOPRIL. [Concomitant]
     Active Substance: LISINOPRIL
     Dosage: UNK
  10. SUTENT [Suspect]
     Active Substance: SUNITINIB MALATE
     Indication: RENAL CANCER
     Dosage: 50 MG, CYCLIC (DAILY FOR 28 DAYS ON/14 DAYS OFF)
     Route: 048
     Dates: start: 20180202
  11. HUMULIN NOS [Concomitant]
     Active Substance: INSULIN HUMAN
     Dosage: UNK, (HUMULIN 70/30 INSULIN)
  12. CIALIS [Concomitant]
     Active Substance: TADALAFIL
     Dosage: UNK

REACTIONS (8)
  - Fatigue [Recovered/Resolved]
  - Oral disorder [Unknown]
  - Constipation [Recovering/Resolving]
  - Hyperkeratosis [Unknown]
  - Pain in extremity [Not Recovered/Not Resolved]
  - Haemorrhoidal haemorrhage [Unknown]
  - Skin abrasion [Unknown]
  - Weight increased [Not Recovered/Not Resolved]

NARRATIVE: CASE EVENT DATE: 2018
